FAERS Safety Report 8015987-8 (Version None)
Quarter: 2011Q4

REPORT INFORMATION
  Report Type: 
  Country: None (occurrence: None)
  Receive Date: 20111230
  Receipt Date: 20111230
  Transmission Date: 20120403
  Serious: Yes (Hospitalization)
  Sender: FDA-Public Use
  Company Number: None

PATIENT
  Age: 74 Year
  Sex: Male
  Weight: 91.6 kg

DRUGS (2)
  1. ASPIRIN [Interacting]
     Route: 048
  2. PRADAXA [Suspect]
     Indication: ATRIAL FIBRILLATION
     Dosage: 150MG
     Route: 048

REACTIONS (4)
  - RECTAL HAEMORRHAGE [None]
  - HAEMOGLOBIN ABNORMAL [None]
  - HAEMORRHOIDS [None]
  - DIVERTICULUM [None]
